FAERS Safety Report 16643759 (Version 1)
Quarter: 2019Q3

REPORT INFORMATION
  Report Type: Spontaneous
  Country: US (occurrence: US)
  Receive Date: 20190729
  Receipt Date: 20190729
  Transmission Date: 20191004
  Serious: No
  Sender: FDA-Public Use
  Company Number: US-PRINSTON PHARMACEUTICAL INC.-2018PRN01435

PATIENT
  Sex: Female

DRUGS (1)
  1. CLONAZEPAM. [Suspect]
     Active Substance: CLONAZEPAM

REACTIONS (10)
  - Ill-defined disorder [Unknown]
  - Diarrhoea [Unknown]
  - Pain [Unknown]
  - Abdominal discomfort [Unknown]
  - Feeling abnormal [Unknown]
  - Adverse food reaction [Unknown]
  - Unevaluable event [Unknown]
  - Nausea [Unknown]
  - Abdominal pain [Unknown]
  - Weight decreased [Unknown]
